FAERS Safety Report 26087239 (Version 1)
Quarter: 2025Q4

REPORT INFORMATION
  Report Type: Spontaneous
  Country: US (occurrence: US)
  Receive Date: 20251125
  Receipt Date: 20251125
  Transmission Date: 20260117
  Serious: Yes (Other)
  Sender: CROWN LABORATORIES, INC.
  Company Number: US-Crown Laboratories, Inc.-2189270

PATIENT
  Sex: Male

DRUGS (1)
  1. ALACORT [Suspect]
     Active Substance: HYDROCORTISONE
     Dates: start: 20251111, end: 20251116

REACTIONS (3)
  - Pruritus [Not Recovered/Not Resolved]
  - Pollakiuria [Not Recovered/Not Resolved]
  - Insomnia [Not Recovered/Not Resolved]

NARRATIVE: CASE EVENT DATE: 20251114
